FAERS Safety Report 6821300-1 (Version None)
Quarter: 2010Q3

REPORT INFORMATION
  Report Type: 
  Country: None (occurrence: None)
  Receive Date: 20100707
  Receipt Date: 20080606
  Transmission Date: 20110219
  Serious: No
  Sender: FDA-Public Use
  Company Number: US-PFIZER INC-2008041871

PATIENT
  Sex: Female
  Weight: 52.2 kg

DRUGS (4)
  1. ZOLOFT [Suspect]
     Indication: ANXIETY
     Route: 048
     Dates: start: 20080513, end: 20080514
  2. ZOLOFT [Suspect]
     Indication: PANIC ATTACK
  3. MAGNESIUM [Concomitant]
  4. HERBAL PREPARATION INGREDIENTS UNKNOWN [Concomitant]

REACTIONS (5)
  - ABNORMAL DREAMS [None]
  - ANXIETY [None]
  - HYPERSENSITIVITY [None]
  - MIDDLE INSOMNIA [None]
  - PALPITATIONS [None]
